FAERS Safety Report 9343862 (Version 1)
Quarter: 2013Q2

REPORT INFORMATION
  Report Type: Spontaneous
  Country: IT (occurrence: None)
  Receive Date: 20130610
  Receipt Date: 20130610
  Transmission Date: 20140414
  Serious: No
  Sender: FDA-Public Use
  Company Number: 2013P1006706

PATIENT
  Age: 63 Year
  Sex: Male

DRUGS (6)
  1. EPHEDRINE [Suspect]
     Indication: HYPOTENSION
     Route: 042
  2. ROCURONIUM [Suspect]
     Indication: HYPOTONIA
  3. PROPOFOL [Concomitant]
  4. EMIFENTANIL [Concomitant]
  5. DESFLURANE [Concomitant]
  6. ROPIVACAINE [Concomitant]

REACTIONS (2)
  - Hypotension [None]
  - Delayed recovery from anaesthesia [None]
